FAERS Safety Report 5861486-9 (Version None)
Quarter: 2008Q3

REPORT INFORMATION
  Report Type: 
  Country: None (occurrence: None)
  Receive Date: 20080827
  Receipt Date: 20080523
  Transmission Date: 20090109
  Serious: No
  Sender: FDA-Public Use
  Company Number: US-ABBOTT-08P-163-0453052-00

PATIENT
  Sex: Female
  Weight: 84.444 kg

DRUGS (8)
  1. NIASPAN [Suspect]
     Indication: BLOOD CHOLESTEROL
     Route: 048
     Dates: start: 20070101, end: 20080301
  2. DILTIAZEM HCL [Concomitant]
     Indication: EXTRASYSTOLES
     Route: 048
  3. CELECOXIB [Concomitant]
     Indication: ARTHRITIS
     Route: 048
  4. ESOMEPRAZOLE MAGNESIUM [Concomitant]
     Indication: DYSPEPSIA
     Route: 048
  5. LISINOPRIL [Concomitant]
     Indication: DIABETES MELLITUS
     Route: 048
  6. EZETIMIBE [Concomitant]
     Indication: BLOOD CHOLESTEROL
     Route: 048
  7. GLIPAZIDE [Concomitant]
     Indication: DIABETES MELLITUS
     Route: 048
  8. ACARBOSE [Concomitant]
     Indication: DIABETES MELLITUS
     Route: 048

REACTIONS (2)
  - ERYTHEMA [None]
  - PAIN OF SKIN [None]
